FAERS Safety Report 25889383 (Version 1)
Quarter: 2025Q4

REPORT INFORMATION
  Report Type: Spontaneous
  Country: EU (occurrence: EU)
  Receive Date: 20251007
  Receipt Date: 20251007
  Transmission Date: 20260118
  Serious: Yes (Hospitalization)
  Sender: CHEPLAPHARM
  Company Number: None

PATIENT
  Age: 31 Year
  Sex: Female

DRUGS (6)
  1. QUETIAPINE [Suspect]
     Active Substance: QUETIAPINE
     Indication: Suicide attempt
     Route: 048
     Dates: start: 20250816, end: 20250816
  2. PRAZEPAM [Suspect]
     Active Substance: PRAZEPAM
     Indication: Suicide attempt
     Dosage: TOTAL
     Route: 048
     Dates: start: 20250816, end: 20250816
  3. VENLAFAXINE [Suspect]
     Active Substance: VENLAFAXINE HYDROCHLORIDE
     Indication: Suicide attempt
     Route: 048
     Dates: start: 20250816, end: 20250816
  4. NOVALGIN (METAMIZOLE SODIUM) [Suspect]
     Active Substance: METAMIZOLE SODIUM
     Indication: Suicide attempt
     Route: 048
     Dates: start: 20250816, end: 20250816
  5. PROTHIPENDYL [Suspect]
     Active Substance: PROTHIPENDYL
     Indication: Suicide attempt
     Route: 048
     Dates: start: 20250816, end: 20250816
  6. ZOPICLONE [Suspect]
     Active Substance: ZOPICLONE
     Indication: Suicide attempt
     Route: 048
     Dates: start: 20250816, end: 20250816

REACTIONS (2)
  - Coma [Recovered/Resolved]
  - Suicide attempt [Recovered/Resolved]

NARRATIVE: CASE EVENT DATE: 20250816
